FAERS Safety Report 24973739 (Version 1)
Quarter: 2025Q1

REPORT INFORMATION
  Report Type: Spontaneous
  Country: US (occurrence: US)
  Receive Date: 20250217
  Receipt Date: 20250217
  Transmission Date: 20250409
  Serious: Yes (Hospitalization, Other)
  Sender: BOEHRINGER INGELHEIM
  Company Number: US-BoehringerIngelheim-2025-BI-008389

PATIENT
  Age: 82 Year
  Sex: Male

DRUGS (4)
  1. JARDIANCE [Suspect]
     Active Substance: EMPAGLIFLOZIN
     Indication: Type 2 diabetes mellitus
  2. TRULICITY [Suspect]
     Active Substance: DULAGLUTIDE
     Indication: Type 2 diabetes mellitus
  3. TRULICITY [Suspect]
     Active Substance: DULAGLUTIDE
  4. TRULICITY [Suspect]
     Active Substance: DULAGLUTIDE

REACTIONS (8)
  - Fall [Unknown]
  - Shoulder fracture [Unknown]
  - Myocardial infarction [Unknown]
  - Blood glucose increased [Recovered/Resolved]
  - Injection site haemorrhage [Unknown]
  - Arthralgia [Unknown]
  - Drug ineffective [Unknown]
  - Product quality issue [Unknown]

NARRATIVE: CASE EVENT DATE: 20241212
